FAERS Safety Report 4750893-3 (Version None)
Quarter: 2005Q3

REPORT INFORMATION
  Report Type: 
  Country: None (occurrence: None)
  Receive Date: 20050818
  Receipt Date: 20050805
  Transmission Date: 20060218
  Serious: Yes (Other)
  Sender: FDA-Public Use
  Company Number: 2005112115

PATIENT
  Sex: Male
  Weight: 74.8435 kg

DRUGS (4)
  1. DETROL LA CAPSULE, PROLONGED RELESAE (TOLTERODINE L-TARTRATE) [Suspect]
     Indication: MICTURITION URGENCY
     Dosage: 2 MG (2 MG, 1 IN 1 D), ORAL
     Route: 048
     Dates: start: 20040101, end: 20040101
  2. DETROL LA CAPSULE, PROLONGED RELESAE (TOLTERODINE L-TARTRATE) [Suspect]
     Indication: POLLAKIURIA
     Dosage: 2 MG (2 MG, 1 IN 1 D), ORAL
     Route: 048
     Dates: start: 20040101, end: 20040101
  3. TAMSULOSIN HCL [Concomitant]
  4. WARFARIN (WARFARIN) [Concomitant]

REACTIONS (1)
  - BENIGN PROSTATIC HYPERPLASIA [None]
